FAERS Safety Report 16596301 (Version 1)
Quarter: 2019Q3

REPORT INFORMATION
  Report Type: Spontaneous
  Country: US (occurrence: US)
  Receive Date: 20190605
  Receipt Date: 20190605
  Transmission Date: 20191004
  Serious: Yes (Hospitalization)
  Sender: FDA-Public Use
  Company Number: None

PATIENT
  Age: 59 Year
  Sex: Female

DRUGS (9)
  1. DULOXETINE. [Concomitant]
     Active Substance: DULOXETINE
  2. CYCLOBENZAPR [Concomitant]
     Active Substance: CYCLOBENZAPRINE
  3. NP THYROID [Concomitant]
     Active Substance: LEVOTHYROXINE\LIOTHYRONINE
  4. METHYLPHENID [Concomitant]
     Active Substance: METHYLPHENIDATE
  5. PREDNISONE. [Concomitant]
     Active Substance: PREDNISONE
  6. HUMIRA [Suspect]
     Active Substance: ADALIMUMAB
     Indication: PRODUCT USED FOR UNKNOWN INDICATION
     Route: 058
     Dates: start: 20180526
  7. LINZESS [Concomitant]
     Active Substance: LINACLOTIDE
  8. ESTRADIOL. [Concomitant]
     Active Substance: ESTRADIOL
  9. TRAZODONE [Concomitant]
     Active Substance: TRAZODONE HYDROCHLORIDE

REACTIONS (2)
  - Hip arthroplasty [None]
  - Therapy cessation [None]

NARRATIVE: CASE EVENT DATE: 20190528
